FAERS Safety Report 20015664 (Version 1)
Quarter: 2021Q4

REPORT INFORMATION
  Report Type: Spontaneous
  Country: US (occurrence: None)
  Receive Date: 20211101
  Receipt Date: 20211101
  Transmission Date: 20220303
  Serious: Yes (Hospitalization, Other)
  Sender: FDA-Public Use
  Company Number: None

PATIENT
  Sex: Female

DRUGS (1)
  1. CLONIDINE [Suspect]
     Active Substance: CLONIDINE
     Dates: start: 20200824, end: 20210420

REACTIONS (3)
  - Fall [None]
  - Dizziness [None]
  - Lower limb fracture [None]

NARRATIVE: CASE EVENT DATE: 20210415
